FAERS Safety Report 9110208 (Version 2)
Quarter: 2013Q2

REPORT INFORMATION
  Report Type: Spontaneous
  Country: CA (occurrence: CA)
  Receive Date: 20130222
  Receipt Date: 20130416
  Transmission Date: 20140414
  Serious: Yes (Life-Threatening, Hospitalization)
  Sender: FDA-Public Use
  Company Number: CA-BAYER-2013-022056

PATIENT
  Age: 47 Year
  Sex: Male
  Weight: 93 kg

DRUGS (1)
  1. CIPRO [Suspect]
     Indication: INFECTION
     Dosage: 500 MG, QD
     Route: 048
     Dates: start: 20120730, end: 20120808

REACTIONS (3)
  - Oedema peripheral [Unknown]
  - Thrombophlebitis [Unknown]
  - Tendon disorder [None]
